FAERS Safety Report 7575069-6 (Version None)
Quarter: 2011Q2

REPORT INFORMATION
  Report Type: 
  Country: None (occurrence: None)
  Receive Date: 20110627
  Receipt Date: 20110609
  Transmission Date: 20111010
  Serious: Yes (Death, Other)
  Sender: FDA-Public Use
  Company Number: US-BAYER-201041611NA

PATIENT
  Age: 72 Year
  Sex: Female
  Weight: 91 kg

DRUGS (13)
  1. LASIX [Concomitant]
     Dosage: 20 MG, PRN
     Route: 048
  2. FUROSEMIDE [Concomitant]
     Dosage: UNK UNK, QD
  3. TRASYLOL [Suspect]
     Indication: MITRAL VALVE REPAIR
  4. QUINAPRIL HCL [Concomitant]
     Dosage: 20 MG, QD
     Route: 048
  5. TIMOPTIC [Concomitant]
     Dosage: 0.5 MG, QD (EYE)
  6. RED BLOOD CELLS [Concomitant]
     Dosage: 4 U, UNK
     Route: 042
     Dates: start: 20061117, end: 20061117
  7. VERPAMIL HCL [Concomitant]
     Dosage: 240 MG, QD
     Route: 048
  8. ACETYLSALICYLIC ACID SRT [Concomitant]
     Dosage: 81 MG, QD
     Route: 048
  9. PRILOSEC [Concomitant]
     Dosage: UNK UNK, QD
     Route: 048
  10. COREG [Concomitant]
     Dosage: 3.125 MG, BID
     Route: 048
  11. TRAZODONE HCL [Concomitant]
     Dosage: 50 MG, QD
     Route: 048
  12. TRASYLOL [Suspect]
     Indication: CORONARY ARTERY BYPASS
     Dosage: 100 ML (LOADING DOSE)
     Route: 042
     Dates: start: 20061117
  13. DIGOXIN [Concomitant]
     Dosage: UNK UNK, QD

REACTIONS (15)
  - DEATH [None]
  - RENAL IMPAIRMENT [None]
  - DEPRESSION [None]
  - FEAR [None]
  - PAIN [None]
  - INJURY [None]
  - MULTI-ORGAN FAILURE [None]
  - EMOTIONAL DISTRESS [None]
  - CARDIAC DISORDER [None]
  - STRESS [None]
  - UNEVALUABLE EVENT [None]
  - RENAL INJURY [None]
  - RENAL FAILURE [None]
  - DYSPNOEA [None]
  - ANXIETY [None]
